FAERS Safety Report 8377043-9 (Version None)
Quarter: 2012Q2

REPORT INFORMATION
  Report Type: 
  Country: None (occurrence: None)
  Receive Date: 20120522
  Receipt Date: 20120509
  Transmission Date: 20120825
  Serious: Yes (Hospitalization, Other)
  Sender: FDA-Public Use
  Company Number: US-ROCHE-1067430

PATIENT
  Age: 76 Year
  Sex: Male

DRUGS (2)
  1. AVASTIN [Suspect]
     Indication: MALIGNANT MELANOMA
     Dosage: OVER 90-30 MIN ON DAY 1, 15 AND 29
     Route: 042
     Dates: start: 20120123, end: 20120403
  2. SUNITINIB MALATE [Suspect]
     Indication: MALIGNANT MELANOMA
     Dosage: ON DAY 1-28
     Route: 048
     Dates: start: 20120123, end: 20120403

REACTIONS (4)
  - HAEMOLYTIC URAEMIC SYNDROME [None]
  - HAPTOGLOBIN DECREASED [None]
  - PLATELET COUNT DECREASED [None]
  - BLOOD CREATININE INCREASED [None]
